FAERS Safety Report 16185128 (Version 4)
Quarter: 2020Q2

REPORT INFORMATION
  Report Type: Spontaneous
  Country: US (occurrence: US)
  Receive Date: 20190411
  Receipt Date: 20200406
  Transmission Date: 20200713
  Serious: No
  Sender: FDA-Public Use
  Company Number: US-PFIZER INC-2019149820

PATIENT
  Age: 75 Year
  Sex: Female
  Weight: 86.18 kg

DRUGS (1)
  1. PREMARIN [Suspect]
     Active Substance: ESTROGENS, CONJUGATED
     Indication: HOT FLUSH
     Dosage: 0.3 MG, DAILY
     Route: 048

REACTIONS (1)
  - Intentional product use issue [Unknown]
